FAERS Safety Report 8814526 (Version 2)
Quarter: 2012Q4

REPORT INFORMATION
  Report Type: 
  Country: IT (occurrence: IT)
  Receive Date: 20120928
  Receipt Date: 20121129
  Transmission Date: 20130627
  Serious: Yes (Hospitalization)
  Sender: FDA-Public Use
  Company Number: PHHY2012IT083973

PATIENT
  Age: 58 Year
  Sex: Male

DRUGS (1)
  1. ZOMETA [Suspect]
     Indication: METASTASES TO BONE
     Dosage: UNK UKN, UNK
     Route: 042
     Dates: start: 20110910, end: 20120102

REACTIONS (2)
  - Bone loss [Recovering/Resolving]
  - Exposed bone in jaw [Recovering/Resolving]
